FAERS Safety Report 8829498 (Version 1)
Quarter: 2012Q4

REPORT INFORMATION
  Report Type: 
  Country: US (occurrence: US)
  Receive Date: 20121008
  Receipt Date: 20121008
  Transmission Date: 20130627
  Serious: No
  Sender: FDA-Public Use
  Company Number: US-TEVA-340429USA

PATIENT
  Age: 63 Year
  Sex: Female
  Weight: 81.72 kg

DRUGS (1)
  1. QVAR [Suspect]

REACTIONS (1)
  - Ageusia [Not Recovered/Not Resolved]
